FAERS Safety Report 10015291 (Version 3)
Quarter: 2017Q1

REPORT INFORMATION
  Report Type: Spontaneous
  Country: US (occurrence: US)
  Receive Date: 20140317
  Receipt Date: 20170224
  Transmission Date: 20170428
  Serious: No
  Sender: FDA-Public Use
  Company Number: US-PFIZER INC-2014074648

PATIENT
  Age: 70 Year
  Sex: Male
  Weight: 78 kg

DRUGS (11)
  1. LISINOPRIL. [Concomitant]
     Active Substance: LISINOPRIL
     Indication: HYPERTENSION
     Dosage: 10 MG TABLET, 1X/DAY
     Route: 048
  2. ABILIFY [Concomitant]
     Active Substance: ARIPIPRAZOLE
     Dosage: 5 MG, 1X/DAY
     Route: 048
  3. ADVAIR HFA [Concomitant]
     Active Substance: FLUTICASONE PROPIONATE\SALMETEROL XINAFOATE
     Dosage: 1 DF, 2X/DAY [FLUTICASONE PROPIONATE 250 MCG]/[SALMETEROL XINAFOATE 50 MCG]
     Route: 055
  4. ATORVASTATIN CALCIUM. [Concomitant]
     Active Substance: ATORVASTATIN CALCIUM
     Dosage: 20 MG, 1X/DAY [EVERY NIGHT AT BEDTIME]
     Route: 048
  5. EFFEXOR XR [Suspect]
     Active Substance: VENLAFAXINE HYDROCHLORIDE
     Dosage: 75 MG, 3X/DAY
     Route: 048
  6. AMLODIPINE BESYLATE. [Concomitant]
     Active Substance: AMLODIPINE BESYLATE
     Dosage: 10 MG, 1X/DAY
     Route: 048
  7. CEPHALEXIN. [Concomitant]
     Active Substance: CEPHALEXIN
     Dosage: 500 MG, 4X/DAY
     Route: 048
  8. SILVADENE [Concomitant]
     Active Substance: SILVER SULFADIAZINE
     Dosage: 1 %, 1X/DAY (TAKE 1 APPLICATION ONCE A DAY FOR 15 DAY(S) APPLY DAILY TO AFFECTED AREA)
  9. EFFEXOR XR [Suspect]
     Active Substance: VENLAFAXINE HYDROCHLORIDE
     Dosage: 75 MG, 2X/DAY
     Route: 048
  10. EFFEXOR XR [Suspect]
     Active Substance: VENLAFAXINE HYDROCHLORIDE
     Dosage: 225 MG, DAILY
     Route: 048
  11. OMEPRAZOLE. [Concomitant]
     Active Substance: OMEPRAZOLE
     Indication: DYSPEPSIA
     Dosage: 20 MG, 1X/DAY
     Route: 048

REACTIONS (1)
  - Ankle fracture [Unknown]
